FAERS Safety Report 5638623-4 (Version None)
Quarter: 2008Q1

REPORT INFORMATION
  Report Type: 
  Country: None (occurrence: None)
  Receive Date: 20080226
  Receipt Date: 20080219
  Transmission Date: 20080703
  Serious: Yes (Hospitalization)
  Sender: FDA-Public Use
  Company Number: NO-ELI_LILLY_AND_COMPANY-NO200802004482

PATIENT
  Sex: Female

DRUGS (9)
  1. ZYPREXA [Suspect]
     Dosage: 2.5 MG, DAILY (1/D)
     Route: 048
     Dates: start: 20080131, end: 20080205
  2. ALBYL-E [Concomitant]
     Dosage: 75 MG, DAILY (1/D)
     Route: 048
     Dates: start: 20070704
  3. PARALGIN FORTE [Concomitant]
     Indication: PAIN
     Dosage: UNK UNK, AS NEEDED
     Dates: start: 20080120
  4. NYCOPLUS FOLSYRE [Concomitant]
     Dosage: 0.4 MG, DAILY (1/D)
     Route: 048
     Dates: start: 20070831
  5. FURIX [Concomitant]
     Dosage: 40 MG, 2/D
     Dates: start: 20080114
  6. LEVOTHYROXINE SODIUM [Concomitant]
     Dosage: 100 UG, 5/W
     Dates: start: 20070831
  7. IBUMETIN [Concomitant]
     Indication: PAIN IN EXTREMITY
     Dosage: 400 MG, AS NEEDED
     Dates: start: 20080114
  8. CLOZAPINE [Concomitant]
     Dosage: 500 MG, AS NEEDED
     Route: 048
     Dates: start: 20080114
  9. LAKTULOSE [Concomitant]
     Dosage: 15 MG, 2/D
     Dates: start: 20071114

REACTIONS (8)
  - ATRIAL FIBRILLATION [None]
  - BODY TEMPERATURE INCREASED [None]
  - C-REACTIVE PROTEIN INCREASED [None]
  - DYSARTHRIA [None]
  - INCONTINENCE [None]
  - MUSCLE RIGIDITY [None]
  - SOMNOLENCE [None]
  - TACHYCARDIA [None]
